FAERS Safety Report 16219647 (Version 2)
Quarter: 2024Q3

REPORT INFORMATION
  Report Type: Spontaneous
  Country: ES (occurrence: ES)
  Receive Date: 20190420
  Receipt Date: 20240717
  Transmission Date: 20241017
  Serious: Yes (Hospitalization, Other)
  Sender: AUROBINDO
  Company Number: ES-AUROBINDO-AUR-APL-2019-021192

PATIENT
  Age: 48 Year
  Sex: Female

DRUGS (8)
  1. BUPIVACAINE [Suspect]
     Active Substance: BUPIVACAINE
     Indication: Product used for unknown indication
     Dosage: 120 MILLIGRAM
     Route: 042
  2. BUPIVACAINE [Suspect]
     Active Substance: BUPIVACAINE
     Dosage: 90 CC OF BUPIVACAINE 0.50 PERCENT
     Route: 042
     Dates: start: 20181220
  3. MORPHINE [Suspect]
     Active Substance: MORPHINE
     Indication: Pain
     Dosage: UNK
     Route: 042
  4. MORPHINE [Suspect]
     Active Substance: MORPHINE
     Dosage: UP TO 100 MG
     Route: 042
  5. MORPHINE [Suspect]
     Active Substance: MORPHINE
     Dosage: UP TO 120 MG EVERY 24 HOURS
     Route: 042
     Dates: start: 201812
  6. ERIBULIN [Suspect]
     Active Substance: ERIBULIN
     Indication: Invasive ductal breast carcinoma
     Dosage: UNKNOWN
     Route: 065
  7. FENTANYL [Suspect]
     Active Substance: FENTANYL\FENTANYL CITRATE
     Indication: Breakthrough pain
     Dosage: 100 MCG, UNKNOWN
     Route: 045
     Dates: start: 201812
  8. KETAMINE [Concomitant]
     Active Substance: KETAMINE
     Indication: Product used for unknown indication
     Dosage: 25 MG
     Route: 042

REACTIONS (4)
  - Device related infection [Unknown]
  - Cellulitis [Unknown]
  - Staphylococcal infection [Unknown]
  - Constipation [Unknown]
